FAERS Safety Report 9895395 (Version 2)
Quarter: 2014Q1

REPORT INFORMATION
  Report Type: Spontaneous
  Country: US (occurrence: US)
  Receive Date: 20140213
  Receipt Date: 20140213
  Transmission Date: 20141002
  Serious: Yes (Other)
  Sender: FDA-Public Use
  Company Number: US-BRISTOL-MYERS SQUIBB COMPANY-17354523

PATIENT
  Age: 48 Year
  Sex: Male
  Weight: 156.46 kg

DRUGS (4)
  1. ORENCIA [Suspect]
     Indication: RHEUMATOID ARTHRITIS
     Dosage: WITH SUBCUTANEOUS FOR 1YR
     Route: 042
     Dates: start: 20130116, end: 201302
  2. PREDNISONE [Concomitant]
  3. METHOTREXATE [Concomitant]
  4. CLONIDINE [Concomitant]

REACTIONS (6)
  - Diverticulitis [Recovered/Resolved]
  - Back pain [Unknown]
  - Nasopharyngitis [Unknown]
  - Gastroenteritis [Recovered/Resolved]
  - Diarrhoea [Unknown]
  - Influenza like illness [Unknown]
